FAERS Safety Report 7077192-1 (Version None)
Quarter: 2010Q4

REPORT INFORMATION
  Report Type: 
  Country: None (occurrence: None)
  Receive Date: 20101101
  Receipt Date: 20101022
  Transmission Date: 20110411
  Serious: Yes (Hospitalization)
  Sender: FDA-Public Use
  Company Number: B0682024A

PATIENT
  Age: 60 Year
  Sex: Male

DRUGS (3)
  1. LEXIVA [Suspect]
     Indication: HIV INFECTION
     Dosage: 1400MG PER DAY
     Dates: start: 20080814
  2. NORVIR [Suspect]
     Indication: HIV INFECTION
     Dosage: 200MG PER DAY
     Dates: start: 20080814
  3. TRUVADA [Suspect]
     Indication: HIV INFECTION
     Dosage: 1TAB PER DAY
     Dates: start: 20080814

REACTIONS (1)
  - LARGE INTESTINE CARCINOMA [None]
